FAERS Safety Report 17358493 (Version 1)
Quarter: 2020Q1

REPORT INFORMATION
  Report Type: Spontaneous
  Country: US (occurrence: US)
  Receive Date: 20200201
  Receipt Date: 20200201
  Transmission Date: 20200409
  Serious: No
  Sender: FDA-Public Use
  Company Number: US-BAYER-2019-218036

PATIENT
  Age: 68 Year
  Sex: Male

DRUGS (1)
  1. LOTRIMIN ULTRA ANTIFUNGAL [Suspect]
     Active Substance: BUTENAFINE HYDROCHLORIDE
     Indication: PAIN
     Dosage: UNK
     Dates: start: 20191125

REACTIONS (2)
  - Product use in unapproved indication [None]
  - Blister [Unknown]

NARRATIVE: CASE EVENT DATE: 20191125
